FAERS Safety Report 7928727-5 (Version None)
Quarter: 2011Q4

REPORT INFORMATION
  Report Type: 
  Country: None (occurrence: None)
  Receive Date: 20111118
  Receipt Date: 20111108
  Transmission Date: 20120403
  Serious: Yes (Hospitalization, Other)
  Sender: FDA-Public Use
  Company Number: SE-ABBOTT-11P-150-0872617-03

PATIENT
  Sex: Male
  Weight: 120 kg

DRUGS (7)
  1. COMMERCIAL HUMIRA [Concomitant]
     Indication: CROHN'S DISEASE
     Route: 058
     Dates: start: 20080115, end: 20080801
  2. HUMIRA [Suspect]
     Indication: CROHN'S DISEASE
     Route: 058
     Dates: start: 20080904, end: 20110907
  3. MESALAMINE [Concomitant]
     Indication: CROHN'S DISEASE
  4. ZOMIG [Concomitant]
     Indication: MIGRAINE
     Dates: start: 20030323
  5. ENALAPRIL MALEATE [Concomitant]
     Indication: HYPERTENSION
     Dates: start: 20111020
  6. HUMIRA [Suspect]
     Route: 058
     Dates: start: 20111107
  7. ATENOLOL [Concomitant]
     Indication: HYPERTENSION
     Dates: start: 20110202

REACTIONS (3)
  - PLEURAL EFFUSION [None]
  - RENAL FAILURE ACUTE [None]
  - PNEUMONIA MYCOPLASMAL [None]
